FAERS Safety Report 6130555-0 (Version None)
Quarter: 2009Q1

REPORT INFORMATION
  Report Type: 
  Country: None (occurrence: None)
  Receive Date: 20090323
  Receipt Date: 20090309
  Transmission Date: 20090719
  Serious: Yes (Hospitalization)
  Sender: FDA-Public Use
  Company Number: POMP-1000527

PATIENT
  Age: 9 Month
  Sex: Female
  Weight: 7.6 kg

DRUGS (2)
  1. MYOZYME [Suspect]
     Dosage: 150 MG, QW, INTRAVENOUS
     Route: 042
     Dates: start: 20081108
  2. MILRINONE (MILRINONE) [Suspect]
     Indication: CARDIOMYOPATHY
     Dosage: INTRAVENOUS
     Route: 042

REACTIONS (3)
  - CARDIOMYOPATHY [None]
  - PYREXIA [None]
  - RESPIRATORY FAILURE [None]
